FAERS Safety Report 17698904 (Version 1)
Quarter: 2020Q2

REPORT INFORMATION
  Report Type: Spontaneous
  Country: US (occurrence: US)
  Receive Date: 20200423
  Receipt Date: 20200423
  Transmission Date: 20200714
  Serious: Yes (Death)
  Sender: FDA-Public Use
  Company Number: None

PATIENT
  Sex: Female

DRUGS (10)
  1. ALBUTEROL. [Concomitant]
     Active Substance: ALBUTEROL
  2. METOPROLOL. [Concomitant]
     Active Substance: METOPROLOL
  3. MULTIVITAMIN [Concomitant]
     Active Substance: VITAMINS
  4. ATORVASTATIN [Concomitant]
     Active Substance: ATORVASTATIN
  5. ELIQUIS [Concomitant]
     Active Substance: APIXABAN
  6. KEPPRA [Concomitant]
     Active Substance: LEVETIRACETAM
  7. DULOXETINE. [Concomitant]
     Active Substance: DULOXETINE
  8. GLIPIZIDE. [Concomitant]
     Active Substance: GLIPIZIDE
  9. BOTOX [Suspect]
     Active Substance: ONABOTULINUMTOXINA
     Indication: MIGRAINE
     Dosage: ?          OTHER FREQUENCY:Q90DAYS;??
     Route: 030
     Dates: start: 20190627
  10. TOPIRAMATE. [Concomitant]
     Active Substance: TOPIRAMATE

REACTIONS (1)
  - Death [None]
